FAERS Safety Report 13264040 (Version 1)
Quarter: 2017Q1

REPORT INFORMATION
  Report Type: Spontaneous
  Country: US (occurrence: US)
  Receive Date: 20170222
  Receipt Date: 20170222
  Transmission Date: 20170428
  Serious: Yes (Hospitalization, Other)
  Sender: FDA-Public Use
  Company Number: None

PATIENT
  Age: 23 Year
  Sex: Female
  Weight: 121.5 kg

DRUGS (2)
  1. RHOPHYLAC [Suspect]
     Active Substance: HUMAN RHO(D) IMMUNE GLOBULIN
     Indication: RHESUS ANTIGEN NEGATIVE
     Dosage: ?          OTHER FREQUENCY:ONCE;?
     Route: 040
     Dates: start: 20170220, end: 20170220
  2. RHOPHYLAC [Suspect]
     Active Substance: HUMAN RHO(D) IMMUNE GLOBULIN
     Indication: ABORTION INCOMPLETE
     Dosage: ?          OTHER FREQUENCY:ONCE;?
     Route: 040
     Dates: start: 20170220, end: 20170220

REACTIONS (9)
  - Chest discomfort [None]
  - Haematocrit decreased [None]
  - Dizziness [None]
  - Malaise [None]
  - Haemoglobin decreased [None]
  - Nausea [None]
  - No reaction on previous exposure to drug [None]
  - Hypovolaemia [None]
  - Blood pressure decreased [None]

NARRATIVE: CASE EVENT DATE: 20170220
